FAERS Safety Report 6204491-5 (Version None)
Quarter: 2009Q2

REPORT INFORMATION
  Report Type: 
  Country: None (occurrence: None)
  Receive Date: 20090527
  Receipt Date: 20090515
  Transmission Date: 20091009
  Serious: Yes (Hospitalization, Other)
  Sender: FDA-Public Use
  Company Number: US-PFIZER INC-2009200592

PATIENT
  Age: 11 Year
  Sex: Male

DRUGS (1)
  1. BACITRACIN [Suspect]

REACTIONS (1)
  - ANAPHYLACTIC REACTION [None]
